FAERS Safety Report 5965840-6 (Version None)
Quarter: 2008Q4

REPORT INFORMATION
  Report Type: 
  Country: None (occurrence: None)
  Receive Date: 20081125
  Receipt Date: 20081113
  Transmission Date: 20090506
  Serious: Yes (Hospitalization)
  Sender: FDA-Public Use
  Company Number: US-BIOGENIDEC-2008BI026471

PATIENT
  Age: 63 Year
  Sex: Male

DRUGS (14)
  1. TYSABRI [Suspect]
     Indication: MULTIPLE SCLEROSIS
     Route: 042
     Dates: start: 20080730
  2. KEPPRA [Concomitant]
     Indication: CONVULSION
  3. BACLOFEN [Concomitant]
  4. SYNTHROID [Concomitant]
     Indication: HYPOTHYROIDISM
  5. XANAX [Concomitant]
  6. DOXAZOSIN MESYLATE [Concomitant]
  7. PROTONIX [Concomitant]
  8. ADVAIR HFA [Concomitant]
  9. ATROVENT [Concomitant]
  10. NASONEX [Concomitant]
  11. TYLENOL (CAPLET) [Concomitant]
  12. ATIVAN [Concomitant]
  13. ZOFRAN [Concomitant]
  14. DULCOLAX [Concomitant]

REACTIONS (1)
  - TRANSIENT ISCHAEMIC ATTACK [None]
